FAERS Safety Report 15029222 (Version 1)
Quarter: 2018Q2

REPORT INFORMATION
  Report Type: Spontaneous
  Country: US (occurrence: US)
  Receive Date: 20180529
  Receipt Date: 20180529
  Transmission Date: 20180711
  Serious: Yes (Disabling, Other)
  Sender: FDA-Public Use
  Company Number: None

PATIENT
  Age: 87 Year
  Sex: Female
  Weight: 54.43 kg

DRUGS (6)
  1. VITAMIN B ENRICHED [Concomitant]
  2. PRESERVISION AREDS [Concomitant]
     Active Substance: MINERALS\VITAMINS
  3. PROLIA [Suspect]
     Active Substance: DENOSUMAB
     Indication: PROPHYLAXIS
     Dates: start: 20180417, end: 20180417
  4. AMLODIPINE [Concomitant]
     Active Substance: AMLODIPINE BESYLATE
  5. VITAMINS (EYES) [Concomitant]
  6. LATANOPROST. [Concomitant]
     Active Substance: LATANOPROST

REACTIONS (9)
  - Chills [None]
  - Throat tightness [None]
  - Hyperhidrosis [None]
  - Bone pain [None]
  - Weight decreased [None]
  - Herpes zoster [None]
  - Hypoacusis [None]
  - Choking [None]
  - Abdominal pain [None]

NARRATIVE: CASE EVENT DATE: 20180417
